FAERS Safety Report 5408024-2 (Version None)
Quarter: 2007Q3

REPORT INFORMATION
  Report Type: 
  Country: None (occurrence: None)
  Receive Date: 20070808
  Receipt Date: 20070727
  Transmission Date: 20080115
  Serious: Yes (Hospitalization)
  Sender: FDA-Public Use
  Company Number: HQWYE240127JUL07

PATIENT
  Age: 62 Year
  Sex: Male

DRUGS (8)
  1. PANTOPRAZOLE SODIUM [Suspect]
     Indication: GASTRITIS
     Route: 048
     Dates: end: 20070601
  2. 3TC [Suspect]
     Indication: HIV INFECTION
     Route: 048
     Dates: end: 20070601
  3. VALCYTE [Suspect]
     Dosage: ^DF^
     Route: 048
     Dates: end: 20070612
  4. KEPPRA [Suspect]
     Indication: EPILEPSY
     Route: 048
     Dates: end: 20070601
  5. PRADIF [Suspect]
     Indication: BENIGN PROSTATIC HYPERPLASIA
     Route: 048
     Dates: end: 20070601
  6. DURAGESIC-100 [Suspect]
     Indication: PAIN
     Route: 062
     Dates: end: 20070601
  7. STOCRIN [Suspect]
     Indication: HIV INFECTION
     Route: 048
     Dates: start: 20060101, end: 20070601
  8. VIREAD [Suspect]
     Indication: HIV INFECTION
     Route: 048
     Dates: end: 20070601

REACTIONS (1)
  - TOXIC SKIN ERUPTION [None]
